FAERS Safety Report 10072168 (Version 2)
Quarter: 2014Q2

REPORT INFORMATION
  Report Type: Report from Study
  Country: FR (occurrence: FR)
  Receive Date: 20140411
  Receipt Date: 20140411
  Transmission Date: 20141212
  Serious: Yes (Other)
  Sender: FDA-Public Use
  Company Number: FR-ACCORD-022962

PATIENT
  Sex: Female

DRUGS (5)
  1. MYCOPHENOLIC ACID [Suspect]
     Indication: TRANSPLANT
     Dates: start: 201011
  2. TACROLIMUS [Suspect]
     Indication: TRANSPLANT
     Dates: start: 201011
  3. SIROLIMUS [Suspect]
     Indication: TRANSPLANT
     Dates: start: 201011
  4. PREDNISOLONE [Suspect]
     Indication: TRANSPLANT
     Dates: start: 201011
  5. CAMPATH-1H [Suspect]
     Indication: TRANSPLANT REJECTION

REACTIONS (5)
  - Epstein-Barr virus infection [Unknown]
  - Deep vein thrombosis [Unknown]
  - Thrombophlebitis superficial [Unknown]
  - Off label use [Unknown]
  - Inulin renal clearance decreased [Unknown]
